FAERS Safety Report 5470420-5 (Version None)
Quarter: 2007Q3

REPORT INFORMATION
  Report Type: 
  Country: None (occurrence: None)
  Receive Date: 20070820
  Receipt Date: 20070509
  Transmission Date: 20080115
  Serious: No
  Sender: FDA-Public Use
  Company Number: WAES 0705USA01778

PATIENT
  Age: 61 Year
  Sex: Male

DRUGS (11)
  1. JANUVIA [Suspect]
     Indication: DIABETES MELLITUS MANAGEMENT
     Dosage: 100 MG/DAILY/PO; 100 MG/1X/PO
     Route: 048
     Dates: start: 20070507, end: 20070507
  2. JANUVIA [Suspect]
     Indication: DIABETES MELLITUS MANAGEMENT
     Dosage: 100 MG/DAILY/PO; 100 MG/1X/PO
     Route: 048
     Dates: start: 20070419
  3. AVALIDE [Concomitant]
  4. PROSCAR [Concomitant]
  5. PROTONIX [Concomitant]
  6. ASPIRIN [Concomitant]
  7. CLONIDINE [Concomitant]
  8. GRAPE SEED OIL [Concomitant]
  9. METFORMIN [Concomitant]
  10. OXYCODONE HCL [Concomitant]
  11. VITAMINS (UNSPECIFIED) [Concomitant]

REACTIONS (6)
  - ACCIDENTAL OVERDOSE [None]
  - CONFUSIONAL STATE [None]
  - DIZZINESS [None]
  - PAIN [None]
  - POLLAKIURIA [None]
  - POLYURIA [None]
